FAERS Safety Report 20911716 (Version 1)
Quarter: 2022Q2

REPORT INFORMATION
  Report Type: Spontaneous
  Country: SE (occurrence: SE)
  Receive Date: 20220603
  Receipt Date: 20220603
  Transmission Date: 20220721
  Serious: Yes (Hospitalization)
  Sender: FDA-Public Use
  Company Number: None

PATIENT
  Age: 38 Year
  Sex: Female

DRUGS (1)
  1. METHOTREXATE [Suspect]
     Active Substance: METHOTREXATE
     Indication: Polyarthritis
     Dosage: 20 MG,UNIT DOSE 20 MG,DURATION 404 DAYS
     Dates: start: 20210217, end: 20220328

REACTIONS (1)
  - Visual field defect [Recovering/Resolving]

NARRATIVE: CASE EVENT DATE: 20220324
